FAERS Safety Report 10027512 (Version 2)
Quarter: 2014Q2

REPORT INFORMATION
  Report Type: Spontaneous
  Country: US (occurrence: US)
  Receive Date: 20140321
  Receipt Date: 20140423
  Transmission Date: 20141212
  Serious: No
  Sender: FDA-Public Use
  Company Number: US-PFIZER INC-2014079664

PATIENT
  Age: 46 Year
  Sex: Male
  Weight: 102 kg

DRUGS (9)
  1. GEODON [Suspect]
     Dosage: 60 MG (1 CAPSULE), 2X/DAY (WITH MEALS)
     Route: 048
     Dates: start: 20140228
  2. XANAX [Suspect]
     Indication: ANXIETY
     Dosage: UNK
  3. ALPRAZOLAM [Suspect]
     Indication: ANXIETY
     Dosage: 0.5 MG 1 TABLET 3X/DAY PRN
     Dates: start: 20140124
  4. TEMAZEPAM [Concomitant]
     Indication: INSOMNIA
     Dosage: 30 MG 1 CAPSULE PRN
     Dates: start: 20140124
  5. PAROXETINE [Concomitant]
     Dosage: 40 MG 1 TABLET  1X/DAY (IN THE MORNING)
     Dates: start: 20140124
  6. NEURONTIN [Concomitant]
     Dosage: UNK
  7. MELOXICAM [Concomitant]
     Dosage: UNK
  8. FLEXERIL [Concomitant]
     Dosage: UNK
  9. CYMBALTA [Concomitant]
     Dosage: UNK

REACTIONS (1)
  - Mood swings [Not Recovered/Not Resolved]
